FAERS Safety Report 5993032-3 (Version None)
Quarter: 2008Q4

REPORT INFORMATION
  Report Type: 
  Country: None (occurrence: None)
  Receive Date: 20081212
  Receipt Date: 20081204
  Transmission Date: 20090506
  Serious: Yes (Other)
  Sender: FDA-Public Use
  Company Number: US-ASTRAZENECA-2008UW27064

PATIENT
  Age: 68 Year
  Sex: Female
  Weight: 67.1 kg

DRUGS (5)
  1. CRESTOR [Suspect]
     Route: 048
     Dates: start: 20081116
  2. SYMBICORT [Concomitant]
  3. ZYRTEC [Concomitant]
  4. LANOXIN [Concomitant]
  5. DILTIAZAM [Concomitant]

REACTIONS (2)
  - COUGH [None]
  - EPISTAXIS [None]
